FAERS Safety Report 17200392 (Version 1)
Quarter: 2019Q4

REPORT INFORMATION
  Report Type: Spontaneous
  Country: US (occurrence: US)
  Receive Date: 20191202
  Receipt Date: 20191202
  Transmission Date: 20200122
  Serious: Yes (Other)
  Sender: FDA-Public Use
  Company Number: None

PATIENT
  Age: 53 Year
  Sex: Female
  Weight: 105.23 kg

DRUGS (2)
  1. RANITIDINE 150MG TABLET [Suspect]
     Active Substance: RANITIDINE
     Indication: DYSPEPSIA
  2. LISINOPRIL-HCTZ 20-12.5MG TAB SUBST FOR: ZESTORETIC [Suspect]
     Active Substance: HYDROCHLOROTHIAZIDE\LISINOPRIL

REACTIONS (5)
  - Dyspnoea [None]
  - Pain [None]
  - Pulmonary pain [None]
  - Vomiting [None]
  - Malaise [None]

NARRATIVE: CASE EVENT DATE: 20181020
